FAERS Safety Report 22240408 (Version 1)
Quarter: 2023Q2

REPORT INFORMATION
  Report Type: Spontaneous
  Country: FR (occurrence: FR)
  Receive Date: 20230421
  Receipt Date: 20230421
  Transmission Date: 20230721
  Serious: Yes (Hospitalization, Other)
  Sender: FDA-Public Use
  Company Number: FR-MLMSERVICE-20230406-4209598-1

PATIENT
  Age: 3 Month
  Weight: 5.5 kg

DRUGS (7)
  1. TACROLIMUS [Suspect]
     Active Substance: TACROLIMUS
     Indication: Immunosuppressant drug therapy
     Dosage: 0.15 MILLIGRAM/KILOGRAM, QD
  2. TACROLIMUS [Suspect]
     Active Substance: TACROLIMUS
     Dosage: 0.15 MILLIGRAM/KILOGRAM, QD
  3. TACROLIMUS [Suspect]
     Active Substance: TACROLIMUS
     Dosage: 0.29 MILLIGRAM/KILOGRAM, QD, INCREASED
  4. TACROLIMUS [Suspect]
     Active Substance: TACROLIMUS
     Dosage: 0.58 MILLIGRAM/KILOGRAM, QD
  5. TACROLIMUS [Suspect]
     Active Substance: TACROLIMUS
     Dosage: 0.7 MILLIGRAM/KILOGRAM, QD, X
  6. TACROLIMUS [Suspect]
     Active Substance: TACROLIMUS
     Dosage: 0.29 MILLIGRAM/KILOGRAM, QD, DECREASED
  7. BASILIXIMAB [Concomitant]
     Active Substance: BASILIXIMAB
     Indication: Immunosuppressant drug therapy
     Dosage: 10 MILLIGRAM, ON POST-OPERATIVE DAY (POD) 0 AND ON POD4

REACTIONS (6)
  - Drug clearance increased [Unknown]
  - Hypoalbuminaemia [Recovered/Resolved]
  - Metabolic acidosis [Unknown]
  - Gastroenteritis rotavirus [Unknown]
  - Blood creatinine increased [Recovered/Resolved]
  - Product use issue [Unknown]
